FAERS Safety Report 7435060-7 (Version None)
Quarter: 2011Q2

REPORT INFORMATION
  Report Type: 
  Country: None (occurrence: None)
  Receive Date: 20110425
  Receipt Date: 20110413
  Transmission Date: 20111010
  Serious: Yes (Hospitalization, Disabling)
  Sender: FDA-Public Use
  Company Number: PHHY2009AU38774

PATIENT
  Sex: Female

DRUGS (1)
  1. ACLASTA [Suspect]
     Dosage: 5 MG
     Route: 042
     Dates: start: 20090909, end: 20090909

REACTIONS (11)
  - ARTHRALGIA [None]
  - HEADACHE [None]
  - TACHYCARDIA [None]
  - HEART RATE IRREGULAR [None]
  - PAIN [None]
  - NEPHROLITHIASIS [None]
  - MYALGIA [None]
  - INFLUENZA LIKE ILLNESS [None]
  - BODY TEMPERATURE INCREASED [None]
  - PYREXIA [None]
  - HEART RATE INCREASED [None]
